FAERS Safety Report 25046160 (Version 2)
Quarter: 2025Q3

REPORT INFORMATION
  Report Type: Spontaneous
  Country: CN (occurrence: CN)
  Receive Date: 20250306
  Receipt Date: 20250803
  Transmission Date: 20251021
  Serious: Yes (Other)
  Sender: ALEXION PHARMACEUTICALS
  Company Number: CN-ASTRAZENECA-202502CHN024745CN

PATIENT
  Age: 89 Year
  Sex: Female
  Weight: 42 kg

DRUGS (3)
  1. BUDESONIDE [Suspect]
     Active Substance: BUDESONIDE
     Indication: Pneumonia
     Dosage: 2 MILLILITER, BID
     Dates: start: 20250214, end: 20250216
  2. BRICANYL [Suspect]
     Active Substance: TERBUTALINE SULFATE
     Indication: Pneumonia
     Dosage: 2 MILLILITER, BID
     Dates: start: 20250214, end: 20250216
  3. SODIUM CHLORIDE [Concomitant]
     Active Substance: SODIUM CHLORIDE
     Indication: Solvent sensitivity
     Dosage: 3 MILLILITER, BID
     Dates: start: 20250214, end: 20250216

REACTIONS (1)
  - Sinus tachycardia [Recovered/Resolved]

NARRATIVE: CASE EVENT DATE: 20250216
